FAERS Safety Report 7341890-2 (Version None)
Quarter: 2011Q1

REPORT INFORMATION
  Report Type: 
  Country: None (occurrence: None)
  Receive Date: 20110309
  Receipt Date: 20110228
  Transmission Date: 20110831
  Serious: Yes (Death, Other)
  Sender: FDA-Public Use
  Company Number: JP-CELGENEUS-087-21880-10101245

PATIENT
  Age: 76 Year
  Sex: Female

DRUGS (30)
  1. MAGLAX [Concomitant]
     Indication: MULTIPLE MYELOMA
     Dosage: 750 MILLIGRAM
     Route: 048
     Dates: start: 20100930, end: 20101010
  2. VENOGLOBULIN [Concomitant]
     Indication: SEPSIS
  3. REVLIMID [Suspect]
     Dosage: 5 MILLIGRAM
     Route: 048
     Dates: start: 20101007, end: 20101009
  4. DEXAMETHASONE [Concomitant]
     Indication: MULTIPLE MYELOMA
     Dosage: .5 MILLIGRAM
     Route: 048
     Dates: start: 20100930, end: 20100930
  5. NEUTROGIN [Concomitant]
     Indication: NEUTROPHIL COUNT DECREASED
     Dosage: 100 MICROGRAM
     Route: 058
     Dates: start: 20101010, end: 20101011
  6. MAXIPIME [Concomitant]
     Indication: PNEUMONIA
     Dosage: 2 GRAM
     Route: 041
     Dates: start: 20101010, end: 20101010
  7. CIPROFLOXACIN [Concomitant]
     Indication: PNEUMONIA
     Dosage: 600 MILLIGRAM
     Route: 041
     Dates: start: 20101011, end: 20101011
  8. ZOVIRAX [Concomitant]
     Indication: PROPHYLAXIS
     Dosage: 200 MILLIGRAM
     Route: 048
     Dates: start: 20070101, end: 20101010
  9. OMEPRAL [Concomitant]
     Indication: MULTIPLE MYELOMA
     Dosage: 10 MILLIGRAM
     Route: 048
     Dates: start: 20070101, end: 20101010
  10. CALONAL [Concomitant]
     Indication: MULTIPLE MYELOMA
     Dosage: 600 MILLIGRAM
     Route: 048
     Dates: start: 20100812, end: 20101010
  11. DOPAMINE [Concomitant]
     Indication: PNEUMONIA
     Route: 041
     Dates: start: 20101011, end: 20101011
  12. MEROPEN [Concomitant]
     Indication: PNEUMONIA
     Dosage: 3 GRAM
     Route: 051
     Dates: start: 20101011, end: 20101011
  13. MEROPEN [Concomitant]
     Indication: SEPSIS
  14. ITRIZOLE [Concomitant]
     Indication: PROPHYLAXIS
     Dosage: 200 MILLIGRAM
     Route: 048
     Dates: start: 20090101, end: 20101010
  15. BONALON [Concomitant]
     Dosage: 35 MILLIGRAM
     Route: 048
     Dates: start: 20070101, end: 20101010
  16. PLATELETS TRANSFUSION [Concomitant]
     Indication: PLATELET COUNT DECREASED
     Route: 065
  17. REVLIMID [Suspect]
     Indication: MULTIPLE MYELOMA
     Dosage: 10 MILLIGRAM
     Route: 048
     Dates: start: 20100930, end: 20101006
  18. ALDACTONE [Concomitant]
     Indication: MITRAL VALVE PROLAPSE
     Dosage: 25 MILLIGRAM
     Route: 048
     Dates: start: 20091001, end: 20101010
  19. ASPIRIN [Concomitant]
     Indication: PROPHYLAXIS
     Dosage: 100 MILLIGRAM
     Route: 048
     Dates: start: 20100930, end: 20101010
  20. DEPAS [Concomitant]
     Indication: MULTIPLE MYELOMA
     Dosage: .5 MILLIGRAM
     Route: 048
     Dates: start: 20090101, end: 20101010
  21. CORTRIL [Concomitant]
     Indication: MULTIPLE MYELOMA
     Dosage: 20 MILLIGRAM
     Route: 048
     Dates: start: 20091001, end: 20101010
  22. LASIX [Concomitant]
     Indication: MITRAL VALVE PROLAPSE
     Dosage: 20 MILLIGRAM
     Route: 048
     Dates: start: 20090101, end: 20101010
  23. CLARITH [Concomitant]
     Indication: PROPHYLAXIS
     Dosage: 200 MILLIGRAM
     Route: 048
     Dates: start: 20100914, end: 20101010
  24. MAXIPIME [Concomitant]
     Indication: SEPSIS
  25. DOPAMINE [Concomitant]
     Indication: SEPSIS
  26. VENOGLOBULIN [Concomitant]
     Indication: PNEUMONIA
     Route: 041
     Dates: start: 20101011, end: 20101011
  27. BAKTAR [Concomitant]
     Indication: PROPHYLAXIS
     Route: 048
     Dates: start: 20070101, end: 20101010
  28. CIPROFLOXACIN [Concomitant]
     Indication: SEPSIS
  29. AMBISOME [Concomitant]
     Indication: PNEUMONIA
     Dosage: 150 MILLIGRAM
     Route: 041
     Dates: start: 20101011, end: 20101011
  30. AMBISOME [Concomitant]
     Indication: SEPSIS

REACTIONS (5)
  - NEUTROPHIL COUNT DECREASED [None]
  - SEPSIS [None]
  - PNEUMONIA [None]
  - ANAEMIA [None]
  - PLATELET COUNT DECREASED [None]
